FAERS Safety Report 23545202 (Version 1)
Quarter: 2024Q1

REPORT INFORMATION
  Report Type: Spontaneous
  Country: US (occurrence: None)
  Receive Date: 20240216
  Receipt Date: 20240216
  Transmission Date: 20240409
  Serious: Yes (Disabling)
  Sender: FDA-Public Use
  Company Number: None

PATIENT
  Age: 32 Year
  Sex: Female
  Weight: 55.34 kg

DRUGS (1)
  1. NORVASC [Suspect]
     Active Substance: AMLODIPINE BESYLATE
     Indication: Hypertension

REACTIONS (14)
  - Tinnitus [None]
  - Deafness [None]
  - Constipation [None]
  - Anal fissure [None]
  - Apathy [None]
  - Thrombocytopenia [None]
  - Anxiety [None]
  - Cognitive disorder [None]
  - Aphasia [None]
  - Thinking abnormal [None]
  - Fatigue [None]
  - Memory impairment [None]
  - Memory impairment [None]
  - Product complaint [None]

NARRATIVE: CASE EVENT DATE: 20240210
